FAERS Safety Report 6025530-0 (Version None)
Quarter: 2008Q4

REPORT INFORMATION
  Report Type: 
  Country: None (occurrence: None)
  Receive Date: 20081224
  Receipt Date: 20081216
  Transmission Date: 20090506
  Serious: Yes (Hospitalization, Other)
  Sender: FDA-Public Use
  Company Number: 2008003278

PATIENT
  Age: 96 Year
  Sex: Male

DRUGS (1)
  1. ERLOTINIB/PLACEBO [Suspect]
     Indication: LUNG NEOPLASM MALIGNANT
     Dosage: 150 MG, ORAL
     Route: 048
     Dates: start: 20081108, end: 20081204

REACTIONS (4)
  - DEHYDRATION [None]
  - FALL [None]
  - ILL-DEFINED DISORDER [None]
  - LETHARGY [None]
